FAERS Safety Report 20700681 (Version 1)
Quarter: 2022Q1

REPORT INFORMATION
  Report Type: Spontaneous
  Country: US (occurrence: None)
  Receive Date: 20220330
  Receipt Date: 20220330
  Transmission Date: 20220423
  Serious: Yes (Death, Life-Threatening, Hospitalization, Other)
  Sender: FDA-Public Use
  Company Number: None

PATIENT
  Age: 70 Year
  Sex: Female
  Weight: 69.3 kg

DRUGS (1)
  1. ZEJULA [Suspect]
     Active Substance: NIRAPARIB
     Indication: Ovarian cancer
     Dosage: FREQUENCY : AS NEEDED;?
     Route: 048
     Dates: start: 20190320, end: 20211221

REACTIONS (2)
  - Myelodysplastic syndrome [None]
  - Therapy cessation [None]

NARRATIVE: CASE EVENT DATE: 20220327
